FAERS Safety Report 9029581 (Version 2)
Quarter: 2013Q1

REPORT INFORMATION
  Report Type: Spontaneous
  Country: US (occurrence: US)
  Receive Date: 20130125
  Receipt Date: 20130129
  Transmission Date: 20140127
  Serious: No
  Sender: FDA-Public Use
  Company Number: US-009507513-1301USA009347

PATIENT
  Sex: Male

DRUGS (5)
  1. PROVENTIL [Suspect]
     Indication: BRONCHITIS
     Dosage: 2 DF, QID
     Route: 055
     Dates: start: 20130111
  2. PRAVASTATIN SODIUM [Concomitant]
  3. METOPROLOL [Concomitant]
  4. CARDIZEM [Concomitant]
  5. CAPOTEN [Concomitant]

REACTIONS (3)
  - Cough [Not Recovered/Not Resolved]
  - Product quality issue [Unknown]
  - Drug dose omission [Unknown]
